FAERS Safety Report 11309836 (Version 1)
Quarter: 2015Q3

REPORT INFORMATION
  Report Type: Spontaneous
  Country: CA (occurrence: CA)
  Receive Date: 20150724
  Receipt Date: 20150724
  Transmission Date: 20151125
  Serious: Yes (Life-Threatening, Hospitalization)
  Sender: FDA-Public Use
  Company Number: CA-TEVA-580948ACC

PATIENT
  Age: 18 Year
  Sex: Female
  Weight: 122.13 kg

DRUGS (3)
  1. SERTRALINE [Suspect]
     Active Substance: SERTRALINE HYDROCHLORIDE
     Indication: OBSESSIVE-COMPULSIVE DISORDER
  2. SERTRALINE [Suspect]
     Active Substance: SERTRALINE HYDROCHLORIDE
     Indication: PANIC DISORDER
     Dosage: 200 MILLIGRAM DAILY;
     Route: 048
  3. SERTRALINE [Suspect]
     Active Substance: SERTRALINE HYDROCHLORIDE
     Indication: DEPRESSION

REACTIONS (10)
  - Feeling of despair [Unknown]
  - Hyperhidrosis [Unknown]
  - Panic attack [Unknown]
  - Anxiety [Unknown]
  - Paranoia [Unknown]
  - Suicide attempt [Unknown]
  - Depression [Unknown]
  - Headache [Unknown]
  - Intentional self-injury [Unknown]
  - Crying [Unknown]
